FAERS Safety Report 24444927 (Version 1)
Quarter: 2024Q4

REPORT INFORMATION
  Report Type: Spontaneous
  Country: US (occurrence: None)
  Receive Date: 20241015
  Receipt Date: 20241015
  Transmission Date: 20250115
  Serious: Yes (Death)
  Sender: Public
  Company Number: None

PATIENT
  Age: 78 Year
  Sex: Male
  Weight: 40.4 kg

DRUGS (4)
  1. FASENRA [Suspect]
     Active Substance: BENRALIZUMAB
     Indication: Asthma
     Dosage: OTHER FREQUENCY : EVERY 8 WEEKS;?
     Route: 058
     Dates: start: 20240619, end: 20240908
  2. ALBUTEROL [Concomitant]
     Active Substance: ALBUTEROL
  3. PANTOPRAZOLE SODIUM [Concomitant]
     Active Substance: PANTOPRAZOLE SODIUM
  4. vitamin d 1000 [Concomitant]

REACTIONS (3)
  - Gastrointestinal disorder [None]
  - Lung disorder [None]
  - Intentional dose omission [None]

NARRATIVE: CASE EVENT DATE: 20240908
